FAERS Safety Report 16012372 (Version 1)
Quarter: 2019Q1

REPORT INFORMATION
  Report Type: Spontaneous
  Country: DK (occurrence: DK)
  Receive Date: 20190227
  Receipt Date: 20190227
  Transmission Date: 20190418
  Serious: Yes (Other)
  Sender: FDA-Public Use
  Company Number: DK-AMGEN-DNKSP2019028240

PATIENT
  Age: 80 Year
  Sex: Male

DRUGS (15)
  1. RIVAROXABAN [Concomitant]
     Active Substance: RIVAROXABAN
     Indication: THROMBOSIS PROPHYLAXIS
     Dosage: 20 MG, UNK
     Route: 048
     Dates: start: 20171013
  2. DOMPERIDONE [Concomitant]
     Active Substance: DOMPERIDONE
     Indication: ADVERSE DRUG REACTION
     Dosage: 10 MG, AS NECESSARY
     Route: 048
     Dates: start: 20180115, end: 20180911
  3. XGEVA [Suspect]
     Active Substance: DENOSUMAB
     Indication: METASTASES TO BONE
     Dosage: 120 MG, UNK
     Route: 065
     Dates: start: 20170731, end: 20180911
  4. CALCIUM + VITAMIN D [Concomitant]
     Active Substance: CALCIUM\VITAMIN D
     Indication: MINERAL SUPPLEMENTATION
     Dosage: 1 DF (400 MG), UNK
     Route: 048
  5. VERAPAMIL [Concomitant]
     Active Substance: VERAPAMIL HYDROCHLORIDE
     Indication: HYPERTENSION
     Dosage: 120 MG, QD
     Route: 048
     Dates: start: 20140130, end: 20181105
  6. PARACETAMOL [Concomitant]
     Active Substance: ACETAMINOPHEN
     Indication: PAIN
     Dosage: 500 MG, ( 2X500 MG AS NECESSARY)
     Route: 048
  7. FLUTICASONE. [Concomitant]
     Active Substance: FLUTICASONE
     Indication: RHINITIS ALLERGIC
     Dosage: 2 DF (27.5 MCG), QD  (2 SPRAYS IN EVERY NOSTRIL DAILY)
     Route: 045
     Dates: start: 20140207
  8. KALEORID [Concomitant]
     Active Substance: POTASSIUM CHLORIDE
     Indication: MINERAL SUPPLEMENTATION
     Dosage: 750 MG, UNK
     Route: 048
     Dates: start: 20140130
  9. BENDROFLUMETHIAZIDE W/POTASSIUM CHLORIDE [Concomitant]
     Indication: HYPERTENSION
     Dosage: 1 DF (2.5 AND 573 MG), QD
     Route: 048
     Dates: start: 20140130, end: 20180911
  10. MACROGOL [Concomitant]
     Active Substance: POLYETHYLENE GLYCOLS
     Indication: CONSTIPATION
     Dosage: 1 DF, BID ( 1 SACHET MORNING AND NOON AS NECESSARY)
     Route: 048
     Dates: start: 20170612
  11. TRANDOLAPRIL. [Concomitant]
     Active Substance: TRANDOLAPRIL
     Indication: HYPERTENSION
     Dosage: 4 MG, QD
     Route: 048
     Dates: start: 20140130
  12. FEXOFENADINE [Concomitant]
     Active Substance: FEXOFENADINE\FEXOFENADINE HYDROCHLORIDE
     Indication: SEASONAL ALLERGY
     Dosage: 120 MG, QD
     Route: 048
     Dates: start: 20140227
  13. PARACETAMOL [Concomitant]
     Active Substance: ACETAMINOPHEN
     Dosage: 665 MG, (1-2X665 MG 3 TIMES DAILY)
     Route: 048
  14. PANTOLOC [Concomitant]
     Active Substance: PANTOPRAZOLE SODIUM
     Indication: GASTROOESOPHAGEAL REFLUX DISEASE
     Dosage: 40 MG, QD
     Route: 048
     Dates: start: 20180226, end: 20180911
  15. FERROUS FUMARATE [Concomitant]
     Active Substance: FERROUS FUMARATE
     Indication: MINERAL SUPPLEMENTATION
     Dosage: 1 DF, UNK
     Route: 048

REACTIONS (4)
  - Oral cavity fistula [Not Recovered/Not Resolved]
  - Exposed bone in jaw [Not Recovered/Not Resolved]
  - Osteonecrosis of jaw [Not Recovered/Not Resolved]
  - Oral pain [Not Recovered/Not Resolved]

NARRATIVE: CASE EVENT DATE: 2018
